FAERS Safety Report 21622011 (Version 1)
Quarter: 2022Q4

REPORT INFORMATION
  Report Type: Spontaneous
  Country: US (occurrence: None)
  Receive Date: 20221118
  Receipt Date: 20221118
  Transmission Date: 20230113
  Serious: No
  Sender: FDA-Public Use
  Company Number: None

PATIENT
  Sex: 0

DRUGS (7)
  1. CAPECITABINE [Suspect]
     Active Substance: CAPECITABINE
     Indication: Breast cancer female
  2. APIXABAN [Concomitant]
     Active Substance: APIXABAN
  3. FASLODEX [Concomitant]
     Active Substance: FULVESTRANT
  4. GABAPENTIN [Concomitant]
     Active Substance: GABAPENTIN
  5. MOTRIN [Concomitant]
     Active Substance: IBUPROFEN
  6. OXYCODONE [Concomitant]
     Active Substance: OXYCODONE
  7. ZOFRAN [Concomitant]
     Active Substance: ONDANSETRON HYDROCHLORIDE

REACTIONS (3)
  - Malaise [None]
  - Nausea [None]
  - Vomiting [None]
